FAERS Safety Report 18078646 (Version 1)
Quarter: 2020Q3

REPORT INFORMATION
  Report Type: Spontaneous
  Country: HU (occurrence: HU)
  Receive Date: 20200728
  Receipt Date: 20200728
  Transmission Date: 20201103
  Serious: Yes (Other)
  Sender: FDA-Public Use
  Company Number: HU-ROCHE-2648049

PATIENT
  Sex: Male

DRUGS (13)
  1. DOXORUBICIN [Suspect]
     Active Substance: DOXORUBICIN
     Indication: HORMONE RECEPTOR POSITIVE BREAST CANCER
     Dosage: UNK
     Route: 065
  2. DOCETAXEL. [Suspect]
     Active Substance: DOCETAXEL
     Indication: HORMONE RECEPTOR POSITIVE BREAST CANCER
     Dosage: UNK
     Route: 065
     Dates: start: 20180629, end: 20181130
  3. KADCYLA [Concomitant]
     Active Substance: ADO-TRASTUZUMAB EMTANSINE
     Indication: HORMONE RECEPTOR POSITIVE BREAST CANCER
     Dosage: UNK
     Route: 065
     Dates: start: 20190705, end: 20191003
  4. ZITAZONIUM [Concomitant]
     Active Substance: TAMOXIFEN CITRATE
     Indication: HORMONE RECEPTOR POSITIVE BREAST CANCER
     Dosage: UNK
     Route: 065
     Dates: end: 20190517
  5. LETROZOLE. [Suspect]
     Active Substance: LETROZOLE
     Indication: HORMONE RECEPTOR POSITIVE BREAST CANCER
     Dosage: UNK
     Route: 065
     Dates: start: 20160316
  6. TAMOXIFEN [Concomitant]
     Active Substance: TAMOXIFEN
     Indication: HORMONE RECEPTOR POSITIVE BREAST CANCER
     Dosage: UNK
     Route: 065
  7. RIBOCICLIB. [Suspect]
     Active Substance: RIBOCICLIB
     Indication: HORMONE RECEPTOR POSITIVE BREAST CANCER
     Dosage: UNK
     Route: 065
     Dates: start: 20160316
  8. HERCEPTIN [Concomitant]
     Active Substance: TRASTUZUMAB
     Indication: HORMONE RECEPTOR POSITIVE BREAST CANCER
     Dosage: UNK
     Route: 065
     Dates: end: 20190517
  9. TYVERB [Suspect]
     Active Substance: LAPATINIB
     Indication: HORMONE RECEPTOR POSITIVE BREAST CANCER
     Dosage: UNK
     Route: 065
     Dates: start: 20191115
  10. GOSERELIN [Concomitant]
     Active Substance: GOSERELIN
     Indication: HORMONE RECEPTOR POSITIVE BREAST CANCER
     Dosage: UNK
     Route: 065
     Dates: start: 20160316
  11. DENOSUMAB [Concomitant]
     Active Substance: DENOSUMAB
     Indication: HORMONE RECEPTOR POSITIVE BREAST CANCER
     Dosage: UNK
     Route: 065
     Dates: start: 20200304
  12. CAPECITABINE. [Suspect]
     Active Substance: CAPECITABINE
     Indication: HORMONE RECEPTOR POSITIVE BREAST CANCER
     Dosage: UNK
     Route: 048
     Dates: start: 20191115
  13. HERCEPTIN [Concomitant]
     Active Substance: TRASTUZUMAB
     Dosage: UNK
     Route: 065
     Dates: start: 20180629, end: 20181130

REACTIONS (7)
  - Metastases to lung [Recovering/Resolving]
  - Hormone receptor positive breast cancer [Unknown]
  - Metastases to lymph nodes [Unknown]
  - Blood alkaline phosphatase increased [Unknown]
  - Metastases to bone [Not Recovered/Not Resolved]
  - Malignant neoplasm progression [Unknown]
  - Back pain [Unknown]

NARRATIVE: CASE EVENT DATE: 20180508
